FAERS Safety Report 6197120-0 (Version None)
Quarter: 2009Q2

REPORT INFORMATION
  Report Type: 
  Country: None (occurrence: None)
  Receive Date: 20090520
  Receipt Date: 20090512
  Transmission Date: 20091009
  Serious: Yes (Hospitalization)
  Sender: FDA-Public Use
  Company Number: JP-ELI_LILLY_AND_COMPANY-JP200809005565

PATIENT
  Sex: Female
  Weight: 42 kg

DRUGS (12)
  1. PEMETREXED [Suspect]
     Indication: PLEURAL MESOTHELIOMA MALIGNANT
     Dosage: 670 MG, OTHER
     Route: 042
     Dates: start: 20080311, end: 20080716
  2. CISPLATIN [Suspect]
     Indication: PLEURAL MESOTHELIOMA MALIGNANT
     Dosage: 100 MG, OTHER
     Route: 042
     Dates: start: 20080311, end: 20080311
  3. CISPLATIN [Suspect]
     Dosage: 67 MG, OTHER
     Route: 042
     Dates: start: 20080402, end: 20080430
  4. CISPLATIN [Suspect]
     Dosage: 50 MG, OTHER
     Route: 042
     Dates: start: 20080528, end: 20080716
  5. PANVITAN [Concomitant]
     Dosage: 1 G, DAILY (1/D)
     Route: 048
     Dates: start: 20080222, end: 20080806
  6. FRESMIN-S [Concomitant]
     Dosage: 1 MG, OTHER
     Route: 030
     Dates: start: 20080222, end: 20080627
  7. MAGLAX [Concomitant]
     Indication: CONSTIPATION
     Dosage: 6 D/F, DAILY (1/D)
     Route: 048
     Dates: start: 20080227
  8. NAUZELIN [Concomitant]
     Indication: PROPHYLAXIS
     Dosage: 3 D/F, DAILY (1/D)
     Route: 048
     Dates: start: 20080312
  9. LOXONIN [Concomitant]
     Indication: CANCER PAIN
     Dosage: 3 D/F, DAILY (1/D)
     Route: 048
     Dates: start: 20080227
  10. DECADRON [Concomitant]
     Indication: PROPHYLAXIS
     Dosage: 8 D/F, DAILY (1/D)
     Route: 048
     Dates: start: 20080314, end: 20080720
  11. GASTER D [Concomitant]
     Indication: PROPHYLAXIS
     Dosage: 40 MG, DAILY (1/D)
     Route: 048
     Dates: start: 20080409, end: 20080417
  12. OXYNORM [Concomitant]
     Indication: CANCER PAIN
     Dosage: 5 MG, AS NEEDED
     Route: 048
     Dates: start: 20080606

REACTIONS (2)
  - IRON DEFICIENCY ANAEMIA [None]
  - RENAL IMPAIRMENT [None]
